FAERS Safety Report 19274258 (Version 1)
Quarter: 2021Q2

REPORT INFORMATION
  Report Type: Spontaneous
  Country: US (occurrence: US)
  Receive Date: 20210519
  Receipt Date: 20210519
  Transmission Date: 20210717
  Serious: No
  Sender: FDA-Public Use
  Company Number: None

PATIENT
  Age: 37 Year
  Sex: Female
  Weight: 81.77 kg

DRUGS (4)
  1. BENZTROPINE. [Concomitant]
     Active Substance: BENZTROPINE
  2. HALOPERIDOL. [Suspect]
     Active Substance: HALOPERIDOL
     Indication: EXTRAPYRAMIDAL DISORDER
     Route: 048
     Dates: start: 20210310
  3. HALOPERIDOL. [Suspect]
     Active Substance: HALOPERIDOL
     Indication: EXTRAPYRAMIDAL DISORDER
     Route: 030
     Dates: start: 20210309
  4. ARIPIPRAZOLE. [Concomitant]
     Active Substance: ARIPIPRAZOLE

REACTIONS (1)
  - Tremor [None]

NARRATIVE: CASE EVENT DATE: 20210311
